FAERS Safety Report 15990331 (Version 1)
Quarter: 2019Q1

REPORT INFORMATION
  Report Type: Spontaneous
  Country: US (occurrence: US)
  Receive Date: 20190221
  Receipt Date: 20190221
  Transmission Date: 20190418
  Serious: No
  Sender: FDA-Public Use
  Company Number: US-ALLERGAN-1809530US

PATIENT
  Age: 75 Year
  Sex: Male
  Weight: 99.79 kg

DRUGS (5)
  1. AZOPT [Concomitant]
     Active Substance: BRINZOLAMIDE
     Indication: CORNEAL TRANSPLANT
     Dosage: 2 GTT, QD
     Route: 047
     Dates: start: 201004
  2. FLUOROMETHOLONE, 0.1% [Suspect]
     Active Substance: FLUOROMETHOLONE
     Indication: INTRAOCULAR PRESSURE INCREASED
  3. CRESTOR [Concomitant]
     Active Substance: ROSUVASTATIN CALCIUM
     Indication: BLOOD CHOLESTEROL
     Dosage: 20 MG, QD
     Route: 048
  4. LUMIGAN [Concomitant]
     Active Substance: BIMATOPROST
     Indication: CORNEAL TRANSPLANT
     Dosage: 1 GTT, QD
     Route: 047
     Dates: start: 201004
  5. FLUOROMETHOLONE, 0.1% [Suspect]
     Active Substance: FLUOROMETHOLONE
     Indication: CORNEAL TRANSPLANT
     Dosage: 2 GTT, QD
     Route: 047
     Dates: start: 20180119

REACTIONS (3)
  - Off label use [Unknown]
  - Product dose omission [Unknown]
  - Product packaging quantity issue [Unknown]

NARRATIVE: CASE EVENT DATE: 20180213
